FAERS Safety Report 23006380 (Version 11)
Quarter: 2024Q2

REPORT INFORMATION
  Report Type: Report from Study
  Country: CA (occurrence: CA)
  Receive Date: 20230929
  Receipt Date: 20240414
  Transmission Date: 20240716
  Serious: Yes (Other)
  Sender: FDA-Public Use
  Company Number: CA-002147023-NVSC2023CA205938

PATIENT
  Age: 46 Year
  Sex: Female

DRUGS (15)
  1. COSENTYX [Suspect]
     Active Substance: SECUKINUMAB
     Indication: Psoriatic arthropathy
     Dosage: 300 MG, QMO
     Route: 058
     Dates: start: 20230918
  2. COSENTYX [Suspect]
     Active Substance: SECUKINUMAB
     Indication: Psoriasis
     Dosage: UNK
     Route: 065
     Dates: start: 20230925
  3. COSENTYX [Suspect]
     Active Substance: SECUKINUMAB
     Dosage: 300 MG, QW
     Route: 058
     Dates: start: 20231002
  4. COSENTYX [Suspect]
     Active Substance: SECUKINUMAB
     Dosage: 300 MG, QMO
     Route: 058
  5. COSENTYX [Suspect]
     Active Substance: SECUKINUMAB
     Dosage: 300 MG, QMO
     Route: 058
  6. COSENTYX [Suspect]
     Active Substance: SECUKINUMAB
     Dosage: 300 MG, QMO, (ASSOCIATED INJECTION)
     Route: 058
     Dates: start: 20240205
  7. COSENTYX [Suspect]
     Active Substance: SECUKINUMAB
     Dosage: 300 MG, QMO
     Route: 058
     Dates: end: 20240205
  8. NAPROXEN [Concomitant]
     Active Substance: NAPROXEN
     Indication: Product used for unknown indication
     Dosage: UNK
     Route: 065
  9. IBUPROFEN [Concomitant]
     Active Substance: IBUPROFEN
     Indication: Product used for unknown indication
     Dosage: UNK
     Route: 065
  10. BOTOX [Concomitant]
     Active Substance: ONABOTULINUMTOXINA
     Indication: Product used for unknown indication
     Dosage: UNK
     Route: 065
  11. VOLTAREN [Concomitant]
     Active Substance: DICLOFENAC SODIUM
     Indication: Product used for unknown indication
     Dosage: UNK, PRN
     Route: 061
  12. VIMOVO [Concomitant]
     Active Substance: ESOMEPRAZOLE MAGNESIUM\NAPROXEN
     Indication: Product used for unknown indication
     Dosage: UNK, BID
     Route: 065
  13. TYLENOL EXTRA STRENGTH [Concomitant]
     Active Substance: ACETAMINOPHEN
     Indication: Product used for unknown indication
     Dosage: UNK, PRN
     Route: 065
  14. EPSOM SALT [Concomitant]
     Active Substance: MAGNESIUM SULFATE
     Indication: Product used for unknown indication
     Dosage: UNK, TID (SALT BATH)
     Route: 065
  15. AMLODIPINE [Concomitant]
     Active Substance: AMLODIPINE BESYLATE
     Indication: Product used for unknown indication
     Dosage: UNK
     Route: 065
     Dates: start: 202305

REACTIONS (22)
  - Blood pressure systolic increased [Unknown]
  - Somnolence [Unknown]
  - Abdominal pain upper [Unknown]
  - Feeling hot [Unknown]
  - Feeling abnormal [Unknown]
  - Fatigue [Unknown]
  - Nausea [Recovering/Resolving]
  - Myalgia [Unknown]
  - Dyspepsia [Unknown]
  - Joint swelling [Unknown]
  - Swelling of eyelid [Unknown]
  - Ocular hyperaemia [Unknown]
  - Miosis [Unknown]
  - Ear pain [Unknown]
  - Respiratory tract congestion [Unknown]
  - Diarrhoea [Not Recovered/Not Resolved]
  - Psoriasis [Unknown]
  - Pruritus [Unknown]
  - Concomitant disease aggravated [Unknown]
  - Migraine [Unknown]
  - Sinusitis [Unknown]
  - Weight increased [Unknown]

NARRATIVE: CASE EVENT DATE: 20230901
